FAERS Safety Report 10165997 (Version 1)
Quarter: 2014Q2

REPORT INFORMATION
  Report Type: Spontaneous
  Country: FR (occurrence: FR)
  Receive Date: 20140511
  Receipt Date: 20140511
  Transmission Date: 20141212
  Serious: Yes (Death)
  Sender: FDA-Public Use
  Company Number: PHHY2014FR056226

PATIENT
  Age: 74 Year
  Sex: Male

DRUGS (5)
  1. RIVASTIGMINE [Suspect]
     Indication: PARKINSON^S DISEASE
     Dosage: 9.5 MG PER DAY
  2. LEVODOPA [Suspect]
     Dosage: 600 MG, PER DAY UPTO
  3. CLONAZEPAM [Concomitant]
  4. GABAPENTIN [Concomitant]
  5. BOTULINUM TOXIN [Concomitant]

REACTIONS (2)
  - Bone sarcoma [Fatal]
  - Apathy [Unknown]
